FAERS Safety Report 8485575-8 (Version None)
Quarter: 2012Q3

REPORT INFORMATION
  Report Type: 
  Country: None (occurrence: None)
  Receive Date: 20120703
  Receipt Date: 20120629
  Transmission Date: 20120928
  Serious: Yes (Hospitalization)
  Sender: FDA-Public Use
  Company Number: FR-SHIRE-SPV1-2012-00604

PATIENT
  Sex: Female

DRUGS (5)
  1. ARANESP [Concomitant]
     Indication: ANAEMIA
     Dosage: 0.142 DF, 1X/WEEK
     Dates: start: 20110711, end: 20120205
  2. IPERTEN [Concomitant]
     Indication: PRODUCT USED FOR UNKNOWN INDICATION
     Dosage: UNK UNK, 1X/DAY:QD
     Route: 048
     Dates: end: 20110725
  3. ANAGRELIDE HYDROCHLORIDE [Suspect]
     Indication: THROMBOCYTOSIS
     Dosage: 0.5 MG, 1X/DAY:QD
     Route: 048
     Dates: start: 20080506, end: 20120205
  4. LASIX [Concomitant]
     Indication: PRODUCT USED FOR UNKNOWN INDICATION
     Dosage: 20 MG, 3X/DAY:TID
     Route: 048
     Dates: start: 20080101, end: 20120205
  5. RAMIPRIL [Concomitant]
     Indication: PRODUCT USED FOR UNKNOWN INDICATION
     Dosage: 1.25 MG, 1X/DAY:QD
     Dates: start: 20111101, end: 20120205

REACTIONS (1)
  - ACUTE RESPIRATORY DISTRESS SYNDROME [None]
